FAERS Safety Report 8296507-X (Version None)
Quarter: 2012Q2

REPORT INFORMATION
  Report Type: 
  Country: None (occurrence: None)
  Receive Date: 20120418
  Receipt Date: 20120413
  Transmission Date: 20120825
  Serious: No
  Sender: FDA-Public Use
  Company Number: US-PFIZER INC-2012093981

PATIENT
  Sex: Female
  Weight: 57.143 kg

DRUGS (1)
  1. GENOTROPIN [Suspect]
     Indication: SEPTO-OPTIC DYSPLASIA
     Dosage: 12 MG, (INJECT 2 MG SUBCUTANEOUSLY EVERY DAY)
     Route: 058
     Dates: start: 20120207

REACTIONS (1)
  - HEADACHE [None]
